FAERS Safety Report 10373773 (Version 1)
Quarter: 2014Q1

REPORT INFORMATION
  Report Type: Spontaneous
  Country: US (occurrence: None)
  Receive Date: 20140306
  Receipt Date: 20140306
  Transmission Date: 20141002
  Serious: Yes (Hospitalization, Other)
  Sender: FDA-Public Use
  Company Number: 163-21880-13105407

PATIENT
  Age: 72 Year
  Sex: Female

DRUGS (8)
  1. REVLIMID (LENALIDOMIDE) (5 MILLIGRAM, CAPSULES) [Suspect]
     Indication: PLASMA CELL MYELOMA
     Dosage: 10 MG, 21 IN 28 D, PO
     Route: 048
     Dates: start: 20120927
  2. ALBUTEROL SULFATE (SALBUTAMOL SULFATE) (INHALANT) [Concomitant]
  3. DUONEB (COMBIVENT) (INHALANT) [Concomitant]
  4. LORTAB (VICODIN) [Concomitant]
  5. NEURONTIN (GABAPENTIN) [Concomitant]
  6. WARFARIN [Concomitant]
  7. PROTONIX [Concomitant]
  8. CARAFATE (SUCRALFATE) [Concomitant]

REACTIONS (1)
  - Oesophageal candidiasis [None]
